FAERS Safety Report 4667687-X (Version None)
Quarter: 2005Q2

REPORT INFORMATION
  Report Type: 
  Country: None (occurrence: None)
  Receive Date: 20050520
  Receipt Date: 20050512
  Transmission Date: 20051028
  Serious: Yes (Hospitalization)
  Sender: FDA-Public Use
  Company Number: US-JNJFOC-20050503279

PATIENT
  Sex: Female
  Weight: 52.16 kg

DRUGS (15)
  1. INFLIXIMAB [Suspect]
     Indication: RHEUMATOID ARTHRITIS
     Route: 042
  2. METHOTREXATE [Concomitant]
  3. BEXTRA [Concomitant]
  4. COUMADIN [Concomitant]
  5. PREDNISONE TAB [Concomitant]
  6. DILTIAZEM [Concomitant]
  7. ALLEGRA [Concomitant]
     Dosage: BEFORE INFLIXIMAB
  8. MULTI-VITAMIN [Concomitant]
  9. MULTI-VITAMIN [Concomitant]
  10. MULTI-VITAMIN [Concomitant]
  11. MULTI-VITAMIN [Concomitant]
  12. MULTI-VITAMIN [Concomitant]
  13. MULTI-VITAMIN [Concomitant]
  14. MULTI-VITAMIN [Concomitant]
  15. MULTI-VITAMIN [Concomitant]

REACTIONS (2)
  - ACCELERATED HYPERTENSION [None]
  - ANGLE CLOSURE GLAUCOMA [None]
